FAERS Safety Report 6221982-1 (Version None)
Quarter: 2009Q2

REPORT INFORMATION
  Report Type: 
  Country: None (occurrence: None)
  Receive Date: 20090611
  Receipt Date: 20071106
  Transmission Date: 20091009
  Serious: Yes (Other)
  Sender: FDA-Public Use
  Company Number: US-ASTRAZENECA-2006UW11239

PATIENT
  Age: 40 Year
  Sex: Male
  Weight: 87.5 kg

DRUGS (25)
  1. SEROQUEL [Suspect]
     Indication: DEPRESSION
     Route: 048
     Dates: start: 20030321
  2. SEROQUEL [Suspect]
     Indication: BIPOLAR DISORDER
     Route: 048
     Dates: start: 20030321
  3. SEROQUEL [Suspect]
     Dosage: 200 MG - 300 MG
     Route: 048
     Dates: start: 20030321, end: 20030929
  4. SEROQUEL [Suspect]
     Dosage: 200 MG - 300 MG
     Route: 048
     Dates: start: 20030321, end: 20030929
  5. SEROQUEL [Suspect]
     Route: 048
     Dates: start: 20031029
  6. SEROQUEL [Suspect]
     Route: 048
     Dates: start: 20031029
  7. ZYPREXA [Concomitant]
     Route: 048
     Dates: start: 20010503
  8. HALDOL [Concomitant]
     Dates: start: 19920101
  9. RISPERDAL [Concomitant]
     Route: 048
     Dates: start: 20050830
  10. THORAZINE [Concomitant]
  11. PROZER [Concomitant]
     Route: 048
     Dates: start: 20010101, end: 20040101
  12. BENADRYL [Concomitant]
     Route: 048
     Dates: start: 20010101, end: 20040101
  13. PHENYTOIN [Concomitant]
     Dosage: 100MG, THREE CAPSULES AT NIGHT
     Route: 048
     Dates: start: 20010423
  14. GLYBURIDE [Concomitant]
     Route: 048
     Dates: start: 19970730
  15. METOPROLOL SUCCINATE [Concomitant]
     Route: 048
     Dates: start: 20031021
  16. FOSINOPRIL SODIUM [Concomitant]
     Route: 048
     Dates: start: 20031124
  17. ASPIRIN [Concomitant]
     Route: 048
     Dates: start: 20031101
  18. NITROGLYCERIN [Concomitant]
     Indication: CHEST PAIN
     Dosage: 0.4MG EVERY 5 MIN
     Route: 060
     Dates: start: 20031021
  19. LIPITOR [Concomitant]
     Route: 048
     Dates: start: 20071022, end: 20071022
  20. FLUOXETINE HCL [Concomitant]
     Route: 048
     Dates: start: 20010601
  21. GABAPENTIN [Concomitant]
     Route: 048
     Dates: start: 20071127
  22. METFORMIN [Concomitant]
     Route: 048
     Dates: start: 20071001
  23. TRAZODONE HCL [Concomitant]
     Route: 048
     Dates: start: 20021216
  24. ENALAPRIL [Concomitant]
     Route: 048
     Dates: start: 20071001
  25. DEPAKOTE [Concomitant]
     Route: 048
     Dates: start: 19970730

REACTIONS (2)
  - DIABETES MELLITUS [None]
  - DIABETIC NEUROPATHY [None]
